FAERS Safety Report 21994279 (Version 2)
Quarter: 2023Q1

REPORT INFORMATION
  Report Type: Report from Study
  Country: ZA (occurrence: ZA)
  Receive Date: 20230215
  Receipt Date: 20230301
  Transmission Date: 20230418
  Serious: Yes (Hospitalization)
  Sender: FDA-Public Use
  Company Number: ZA-002147023-NVSC2023ZA027970

PATIENT
  Age: 71 Year
  Sex: Male

DRUGS (2)
  1. COSENTYX [Suspect]
     Active Substance: SECUKINUMAB
     Indication: Ankylosing spondylitis
     Dosage: 300 MG, QMO
     Route: 058
     Dates: start: 20210513
  2. TAMIFLU [Concomitant]
     Active Substance: OSELTAMIVIR PHOSPHATE
     Indication: Product used for unknown indication
     Dosage: 75 MG, BID FOR 5 DAYS
     Route: 065

REACTIONS (10)
  - Intervertebral disc degeneration [Recovering/Resolving]
  - Restless legs syndrome [Recovering/Resolving]
  - Pain in extremity [Unknown]
  - Viral upper respiratory tract infection [Recovering/Resolving]
  - Eczema [Unknown]
  - Pain [Unknown]
  - Syndesmophyte [Unknown]
  - Bone marrow oedema [Unknown]
  - Facet joint syndrome [Unknown]
  - Intervertebral disc protrusion [Unknown]

NARRATIVE: CASE EVENT DATE: 20221218
